FAERS Safety Report 5921574-5 (Version None)
Quarter: 2008Q4

REPORT INFORMATION
  Report Type: 
  Country: None (occurrence: None)
  Receive Date: 20081016
  Receipt Date: 20081016
  Transmission Date: 20090506
  Serious: Yes (Life-Threatening)
  Sender: FDA-Public Use
  Company Number: None

PATIENT
  Sex: Male
  Weight: 104.3273 kg

DRUGS (1)
  1. EFALIZUMAB [Suspect]
     Indication: PSORIASIS
     Dosage: 1.1 ML WEEKLY SUB Q
     Route: 058
     Dates: start: 20040608, end: 20080701

REACTIONS (2)
  - LYMPHOMA [None]
  - METASTASES TO LIVER [None]
